FAERS Safety Report 7924976-0 (Version None)
Quarter: 2011Q4

REPORT INFORMATION
  Report Type: 
  Country: None (occurrence: None)
  Receive Date: 20111118
  Receipt Date: 20110331
  Transmission Date: 20120403
  Serious: No
  Sender: FDA-Public Use
  Company Number: US-AMGEN-USASP2011017222

PATIENT
  Sex: Male

DRUGS (6)
  1. LEXAPRO [Concomitant]
     Dosage: 20 MG, UNK
  2. ENBREL [Suspect]
     Indication: PRODUCT USED FOR UNKNOWN INDICATION
     Dosage: 50 MG, QWK
  3. METHOTREXATE [Concomitant]
     Dosage: 2.5 MG, UNK
  4. AMBIEN [Concomitant]
     Dosage: 5 MG, UNK
  5. PANTOPRAZOLE [Concomitant]
     Dosage: 20 MG, UNK
  6. FOLIC ACID [Concomitant]
     Dosage: 1 MG, UNK

REACTIONS (1)
  - PULMONARY CONGESTION [None]
